FAERS Safety Report 7341654-X (Version None)
Quarter: 2011Q1

REPORT INFORMATION
  Report Type: 
  Country: None (occurrence: None)
  Receive Date: 20110309
  Receipt Date: 20110304
  Transmission Date: 20110831
  Serious: Yes (Death, Hospitalization, Other)
  Sender: FDA-Public Use
  Company Number: US-ABBOTT-11P-163-0709581-00

PATIENT
  Sex: Male
  Weight: 56.75 kg

DRUGS (4)
  1. CHEMOTHERAPEUTICS [Suspect]
     Indication: HEPATIC NEOPLASM MALIGNANT
     Dosage: 3 ROUNDS OF CHEMOTHERAPY
     Dates: start: 20100801
  2. HUMIRA [Suspect]
     Indication: RHEUMATOID ARTHRITIS
  3. HUMIRA [Suspect]
     Indication: CROHN'S DISEASE
     Route: 058
     Dates: end: 20110201
  4. MULTIPLE OTHER CONCOMITANT MEDICATIONS [Concomitant]
     Indication: CROHN'S DISEASE

REACTIONS (9)
  - ABDOMINAL PAIN [None]
  - BLOOD PRESSURE INCREASED [None]
  - LUNG NEOPLASM MALIGNANT [None]
  - HEPATIC FAILURE [None]
  - ABDOMINAL PAIN UPPER [None]
  - JAUNDICE [None]
  - THROMBOSIS [None]
  - HEPATIC NEOPLASM MALIGNANT [None]
  - BLOOD GLUCOSE INCREASED [None]
